FAERS Safety Report 9195844 (Version 2)
Quarter: 2013Q2

REPORT INFORMATION
  Report Type: Spontaneous
  Country: US (occurrence: None)
  Receive Date: 20130312
  Receipt Date: 20130430
  Transmission Date: 20140414
  Serious: Yes (Other)
  Sender: FDA-Public Use
  Company Number: 2013034955

PATIENT
  Sex: Female
  Weight: 23.59 kg

DRUGS (3)
  1. PRIVIGEN (IMMUNE GLOBULIN INTRAVENOUS (HUMAN) 10% LIQUID) [Suspect]
     Indication: IMMUNODEFICIENCY COMMON VARIABLE
     Dosage: OVER 2?HOURS, 10 MINUTES
     Route: 042
     Dates: start: 20130109, end: 20130110
  2. BENADRYL (DIPHENHYDRAMINE HYDROCHLORIDE) [Concomitant]
  3. TYLENOL (PARACETAMOL) [Concomitant]

REACTIONS (2)
  - Meningitis aseptic [None]
  - Heart rate decreased [None]
